FAERS Safety Report 9768952 (Version 2)
Quarter: 2014Q1

REPORT INFORMATION
  Report Type: Spontaneous
  Country: IT (occurrence: None)
  Receive Date: 20131216
  Receipt Date: 20140210
  Transmission Date: 20141002
  Serious: Yes (Hospitalization)
  Sender: FDA-Public Use
  Company Number: AG-2013-016175

PATIENT
  Age: 77 Year
  Sex: Female

DRUGS (2)
  1. CHLORAMBUCIL [Suspect]
     Indication: LYMPHOMA
     Dosage: 2MG PER KG OF BODYWEIGHT (2 MG/KG, 1 IN 1 D), ORAL
     Route: 048
     Dates: start: 20131111, end: 20131125
  2. ACICLOVIR (ACICLOVIR) [Concomitant]

REACTIONS (2)
  - Diverticulitis [None]
  - Diverticular perforation [None]
